FAERS Safety Report 10880968 (Version 1)
Quarter: 2015Q1

REPORT INFORMATION
  Report Type: Spontaneous
  Country: US (occurrence: None)
  Receive Date: 20150225
  Receipt Date: 20150225
  Transmission Date: 20150721
  Serious: No
  Sender: FDA-Public Use
  Company Number: None

PATIENT

DRUGS (1)
  1. METFORMIN GENERIC GLUCO PHAGE ER 500 MG TAB AMNEA [Suspect]
     Active Substance: METFORMIN HYDROCHLORIDE
     Dosage: 1 TABLET
     Route: 048
     Dates: start: 20140319

REACTIONS (6)
  - Fall [None]
  - Dizziness [None]
  - Decreased activity [None]
  - Loss of consciousness [None]
  - Confusional state [None]
  - Seizure [None]
